FAERS Safety Report 8114141-9 (Version None)
Quarter: 2012Q1

REPORT INFORMATION
  Report Type: 
  Country: None (occurrence: None)
  Receive Date: 20120204
  Receipt Date: 20120123
  Transmission Date: 20120608
  Serious: Yes (Death, Hospitalization, Other)
  Sender: FDA-Public Use
  Company Number: ES-MYLANLABS-2012S1001969

PATIENT
  Age: 33 Year
  Sex: Female

DRUGS (5)
  1. POSACONAZOLE [Interacting]
     Indication: ACUTE PROMYELOCYTIC LEUKAEMIA
     Route: 065
  2. DEXAMETHASONE [Concomitant]
     Indication: PROPHYLAXIS
     Dosage: 2.5 MG/M2/12H ON DAYS 1-15
     Route: 040
  3. TRETINOIN [Interacting]
     Indication: ACUTE PROMYELOCYTIC LEUKAEMIA
     Dosage: 45 MG/M2/DAY IN TWO DIVIDED DOSES
     Route: 048
  4. FLUCONAZOLE [Suspect]
     Indication: ANTIFUNGAL PROPHYLAXIS
     Route: 065
  5. IDARUBICIN HCL [Concomitant]
     Indication: ACUTE PROMYELOCYTIC LEUKAEMIA
     Dosage: 12 MG/M2 ON DAYS 2, 4, 6 AND 8
     Route: 041

REACTIONS (7)
  - DRUG INTERACTION [None]
  - ABDOMINAL PAIN [None]
  - HEPATOTOXICITY [None]
  - SEPTIC SHOCK [None]
  - MULTI-ORGAN FAILURE [None]
  - DIARRHOEA [None]
  - ABDOMINAL DISTENSION [None]
